FAERS Safety Report 16689895 (Version 2)
Quarter: 2019Q3

REPORT INFORMATION
  Report Type: Spontaneous
  Country: US (occurrence: US)
  Receive Date: 20190809
  Receipt Date: 20190812
  Transmission Date: 20191004
  Serious: Yes (Hospitalization, Other)
  Sender: FDA-Public Use
  Company Number: US-SHIRE-US201925580

PATIENT
  Age: 52 Year
  Sex: Female

DRUGS (1)
  1. GATTEX [Suspect]
     Active Substance: TEDUGLUTIDE\WATER
     Indication: SHORT-BOWEL SYNDROME
     Route: 065
     Dates: start: 20190605

REACTIONS (4)
  - Gastrointestinal wall thickening [Unknown]
  - Haematochezia [Unknown]
  - Hypotension [Unknown]
  - Abdominal pain [Unknown]
